FAERS Safety Report 18757928 (Version 2)
Quarter: 2021Q1

REPORT INFORMATION
  Report Type: Spontaneous
  Country: US (occurrence: US)
  Receive Date: 20210119
  Receipt Date: 20210225
  Transmission Date: 20210419
  Serious: Yes (Other)
  Sender: FDA-Public Use
  Company Number: US-INCYTE CORPORATION-2021IN000272

PATIENT

DRUGS (2)
  1. JAKAFI [Suspect]
     Active Substance: RUXOLITINIB
     Dosage: 20 MILLIGRAM, BID
     Route: 048
     Dates: start: 20201221
  2. JAKAFI [Suspect]
     Active Substance: RUXOLITINIB
     Dosage: 40 MILLIGRAM, QD
     Route: 048
     Dates: start: 20201222

REACTIONS (6)
  - Back disorder [Unknown]
  - Back pain [Unknown]
  - Balance disorder [Unknown]
  - Pollakiuria [Unknown]
  - Product availability issue [Unknown]
  - Cardiac failure congestive [Unknown]
